FAERS Safety Report 18864936 (Version 1)
Quarter: 2021Q1

REPORT INFORMATION
  Report Type: Spontaneous
  Country: AU (occurrence: AU)
  Receive Date: 20210208
  Receipt Date: 20210208
  Transmission Date: 20210420
  Serious: Yes (Other)
  Sender: FDA-Public Use
  Company Number: AU-ASTRAZENECA-2021A035371

PATIENT
  Sex: Male

DRUGS (2)
  1. DIASP SR??(DIPYRIDAMOLE / ASPIRIN) [Suspect]
     Active Substance: ASPIRIN\DIPYRIDAMOLE
     Dosage: 200MG/25 MG, UNKNOWN
     Route: 065
  2. BRILINTA [Suspect]
     Active Substance: TICAGRELOR
     Route: 048

REACTIONS (1)
  - Cerebrovascular accident [Unknown]

NARRATIVE: CASE EVENT DATE: 20201007
